FAERS Safety Report 16026087 (Version 1)
Quarter: 2019Q1

REPORT INFORMATION
  Report Type: Spontaneous
  Country: US (occurrence: US)
  Receive Date: 20190302
  Receipt Date: 20190302
  Transmission Date: 20190418
  Serious: No
  Sender: FDA-Public Use
  Company Number: US-TEVA-2019-US-1008946

PATIENT
  Sex: Female

DRUGS (1)
  1. BUTAL/APAP/CAFF ACTAVIS [Suspect]
     Active Substance: ACETAMINOPHEN\BUTALBITAL\CAFFEINE
     Indication: MIGRAINE
     Dosage: 50/325/40MG
     Dates: start: 201811

REACTIONS (5)
  - Product taste abnormal [Unknown]
  - Headache [Unknown]
  - Drug ineffective [Unknown]
  - Product use complaint [Unknown]
  - Product substitution issue [Unknown]
